FAERS Safety Report 6081013-3 (Version None)
Quarter: 2009Q1

REPORT INFORMATION
  Report Type: 
  Country: None (occurrence: None)
  Receive Date: 20090217
  Receipt Date: 20090210
  Transmission Date: 20090719
  Serious: No
  Sender: FDA-Public Use
  Company Number: US-B.I. PHARMACEUTICALS,INC./RIDGEFIELD-2009-BP-01758BP

PATIENT
  Age: 73 Year
  Sex: Male

DRUGS (54)
  1. SPIRIVA [Suspect]
     Indication: CHRONIC OBSTRUCTIVE PULMONARY DISEASE
     Dosage: 18MCG
     Route: 055
     Dates: start: 20081001, end: 20090127
  2. IPATROPIUM BROMIDE/ALBUTEROL [Concomitant]
     Indication: CHRONIC OBSTRUCTIVE PULMONARY DISEASE
     Route: 055
     Dates: start: 20081025, end: 20081122
  3. FLOVENT HFA [Concomitant]
     Indication: CHRONIC OBSTRUCTIVE PULMONARY DISEASE
     Route: 055
  4. XANAX [Concomitant]
     Indication: ANXIETY
     Route: 048
     Dates: start: 19820101
  5. HUMULIN 70/30 [Concomitant]
     Indication: DIABETES MELLITUS
     Route: 058
  6. HUMULIN 70/30 [Concomitant]
     Route: 058
  7. FUROSEMIDE [Concomitant]
     Indication: CHRONIC OBSTRUCTIVE PULMONARY DISEASE
     Route: 048
  8. KT REPLACEMENT [Concomitant]
     Indication: CHRONIC OBSTRUCTIVE PULMONARY DISEASE
  9. TYLENOL [Concomitant]
     Indication: PAIN
     Dosage: 1000MG
  10. MAGNESIUM SULFATE [Concomitant]
     Dosage: 250MG
  11. MAGNESIUM SULFATE [Concomitant]
     Dosage: 100MG
  12. ALFALFA LEAF EXTRACT [Concomitant]
     Dosage: 200MG
  13. VITAMIN B-12 [Concomitant]
     Dosage: 1000MG
  14. VITAMIN B-12 [Concomitant]
     Dosage: 80MCG
  15. BETA CAROTENE [Concomitant]
     Dosage: 15MG
  16. GLUCOSAMINE HCI [Concomitant]
     Dosage: 750MG
  17. CHONDROITIN SULFATE [Concomitant]
  18. CALCIUM [Concomitant]
     Dosage: 1000MG
  19. CALCIUM [Concomitant]
     Dosage: 1200MG
  20. VITAMIN D [Concomitant]
     Dosage: 10MCG
  21. VITAMIN D [Concomitant]
     Dosage: 400U
  22. ASCORBIC ACID [Concomitant]
     Dosage: 2000MG
  23. ASCORBIC ACID [Concomitant]
     Dosage: 1000MG
  24. FOLIC ACID [Concomitant]
     Dosage: 400MCG
  25. VITAMIN E [Concomitant]
     Dosage: 400U
  26. VITAMIN E [Concomitant]
     Dosage: 260U
  27. NIACIN [Concomitant]
     Dosage: 250MCG
  28. NIACIN [Concomitant]
     Dosage: 20MG
  29. CONCENTRATED FISH OIL WITH OMEGA 3 [Concomitant]
  30. ASIAN GINSING [Concomitant]
     Dosage: 100MG
  31. VITAMIN A [Concomitant]
     Dosage: 3500U
  32. VITAMIN K [Concomitant]
     Dosage: 10MCG
  33. VITAMIN B1 TAB [Concomitant]
     Dosage: 51.5MG
  34. RIBOFLAVIN TAB [Concomitant]
     Dosage: 51.7MG
  35. VITAMIN B6 [Concomitant]
     Dosage: 53MG
  36. FOLATE [Concomitant]
     Dosage: 800MCG
  37. BIOTIN [Concomitant]
     Dosage: 80MCG
  38. PANTOTHENIC ACID [Concomitant]
  39. PHOSPHOROUS [Concomitant]
     Dosage: 48MG
  40. IODINE [Concomitant]
     Dosage: 150MCG
  41. ZINC [Concomitant]
     Dosage: 15MG
  42. SELENIUM [Concomitant]
     Dosage: 20MCG
  43. COPPER [Concomitant]
     Dosage: 2MG
  44. MANGANESE [Concomitant]
     Dosage: 3.5MG
  45. CHROMIUM [Concomitant]
     Dosage: 150MCG
  46. MOLYDENUM [Concomitant]
     Dosage: 160MCG
  47. CHLORIDE [Concomitant]
     Dosage: 12MG
  48. POTASSIUM CHLORIDE [Concomitant]
     Dosage: 80MG
  49. BORON [Concomitant]
     Dosage: 30MG
  50. NICKEL [Concomitant]
  51. SILICON [Concomitant]
     Dosage: 2MG
  52. VANADICEM [Concomitant]
     Dosage: 10MCG
  53. LUTEN [Concomitant]
     Dosage: 275MCG
  54. LYCOPENE [Concomitant]
     Dosage: 300MCG

REACTIONS (2)
  - ATRIAL FIBRILLATION [None]
  - RASH VESICULAR [None]
